FAERS Safety Report 12367022 (Version 2)
Quarter: 2019Q4

REPORT INFORMATION
  Report Type: Spontaneous
  Country: US (occurrence: US)
  Receive Date: 20160513
  Receipt Date: 20191212
  Transmission Date: 20200122
  Serious: Yes (Other)
  Sender: FDA-Public Use
  Company Number: US-TEVA-659459ACC

PATIENT
  Age: 31 Year
  Sex: Female
  Weight: 39.95 kg

DRUGS (3)
  1. VITAMIN D3 [Concomitant]
     Active Substance: CHOLECALCIFEROL
     Indication: VITAMIN D DEFICIENCY
  2. VITAMIN B12 [Concomitant]
     Active Substance: CYANOCOBALAMIN
     Indication: VITAMIN B12 DEFICIENCY
  3. PLAN B ONE-STEP [Suspect]
     Active Substance: LEVONORGESTREL
     Indication: POST COITAL CONTRACEPTION
     Dates: start: 20160502, end: 20160502

REACTIONS (10)
  - Dyspepsia [Not Recovered/Not Resolved]
  - Breast tenderness [Not Recovered/Not Resolved]
  - Nausea [Not Recovered/Not Resolved]
  - Vaginal haemorrhage [Recovered/Resolved]
  - Pregnancy after post coital contraception [Unknown]
  - Vomiting [Recovered/Resolved]
  - Back pain [Recovered/Resolved]
  - Abdominal pain [Recovered/Resolved]
  - Eructation [Unknown]
  - Maternal exposure before pregnancy [Unknown]

NARRATIVE: CASE EVENT DATE: 20160502
